FAERS Safety Report 9585977 (Version 2)
Quarter: 2013Q4

REPORT INFORMATION
  Report Type: Spontaneous
  Country: US (occurrence: US)
  Receive Date: 20131003
  Receipt Date: 20131008
  Transmission Date: 20140711
  Serious: No
  Sender: FDA-Public Use
  Company Number: US-PFIZER INC-2013282789

PATIENT
  Age: 77 Year
  Sex: Female
  Weight: 93.88 kg

DRUGS (5)
  1. LYRICA [Suspect]
     Indication: BLOOD GLUCOSE ABNORMAL
     Dosage: 2 DF, 2X/DAY
     Route: 048
     Dates: end: 2013
  2. LYRICA [Suspect]
     Indication: HYPERTENSION
  3. LYRICA [Suspect]
     Indication: FIBROMYALGIA
  4. METOPROLOL [Concomitant]
     Indication: HYPERTENSION
     Dosage: UNK
  5. GLIPIZIDE [Concomitant]
     Indication: DIABETES MELLITUS
     Dosage: UNK

REACTIONS (6)
  - Off label use [Recovered/Resolved]
  - Pain [Unknown]
  - Burning sensation [Unknown]
  - Skin burning sensation [Unknown]
  - Pain in extremity [Unknown]
  - Insomnia [Unknown]
